FAERS Safety Report 14211084 (Version 1)
Quarter: 2017Q4

REPORT INFORMATION
  Report Type: Spontaneous
  Country: FR (occurrence: FR)
  Receive Date: 20171121
  Receipt Date: 20171121
  Transmission Date: 20180321
  Serious: Yes (Death)
  Sender: FDA-Public Use
  Company Number: FR-BAYER-2017-219038

PATIENT
  Age: 2 Hour
  Sex: Male

DRUGS (1)
  1. KOGENATE [Suspect]
     Active Substance: ANTIHEMOPHILIC FACTOR, HUMAN RECOMBINANT

REACTIONS (3)
  - Paternal exposure timing unspecified [None]
  - Foetal death [Fatal]
  - Premature baby [Fatal]

NARRATIVE: CASE EVENT DATE: 201702
